FAERS Safety Report 6299280-X (Version None)
Quarter: 2009Q3

REPORT INFORMATION
  Report Type: 
  Country: None (occurrence: None)
  Receive Date: 20090806
  Receipt Date: 20090404
  Transmission Date: 20100115
  Serious: Yes (Death, Hospitalization)
  Sender: FDA-Public Use
  Company Number: FR-PFIZER INC-2009188791

PATIENT
  Age: 60 Year

DRUGS (23)
  1. VORICONAZOLE [Suspect]
     Dosage: 300 MG, 2X/DAY
     Route: 048
     Dates: start: 20090210, end: 20090320
  2. BLINDED *NO SUBJECT DRUG [Suspect]
     Indication: SYSTEMIC CANDIDA
     Dosage: 100 MG, 1X/DAY
     Route: 042
     Dates: start: 20090210, end: 20090223
  3. BLINDED *PLACEBO [Suspect]
     Indication: SYSTEMIC CANDIDA
     Dosage: 100 MG, 1X/DAY
     Route: 042
     Dates: start: 20090210, end: 20090223
  4. BLINDED ANIDULAFUNGIN [Suspect]
     Indication: SYSTEMIC CANDIDA
     Dosage: 100 MG, 1X/DAY
     Route: 042
     Dates: start: 20090210, end: 20090223
  5. DIAMICRON [Concomitant]
     Dosage: UNK
     Route: 048
     Dates: start: 20090216, end: 20090321
  6. IMOVANE [Concomitant]
     Dosage: UNK
     Route: 048
     Dates: start: 20090216, end: 20090321
  7. NEXIUM [Concomitant]
     Dosage: UNK
     Route: 048
     Dates: start: 20090216, end: 20090321
  8. LASIX [Concomitant]
     Dosage: UNK
     Route: 042
     Dates: start: 20090228, end: 20090321
  9. LEXOMIL [Concomitant]
     Dosage: UNK
     Route: 048
     Dates: start: 20090204, end: 20090321
  10. LOPRESSOR [Concomitant]
     Dosage: UNK
     Route: 048
     Dates: start: 20090216, end: 20090321
  11. ZELITREX [Concomitant]
     Dosage: UNK
     Route: 048
     Dates: start: 20090216, end: 20090321
  12. NEULASTA [Concomitant]
     Route: 058
  13. TOPALGIC [Concomitant]
     Dosage: UNK
     Route: 048
     Dates: start: 20090216, end: 20090321
  14. PRIMPERAN [Concomitant]
     Dosage: UNK
     Route: 048
     Dates: start: 20090216, end: 20090321
  15. SPASFON [Concomitant]
     Dosage: UNK
     Route: 048
     Dates: start: 20090123, end: 20090321
  16. TRIMEBUTINE MALEATE [Concomitant]
     Dosage: UNK
     Route: 048
     Dates: start: 20090123, end: 20090321
  17. TRANXENE [Concomitant]
     Dosage: UNK
     Route: 048
     Dates: start: 20090123, end: 20090203
  18. ACTRAPID [Concomitant]
     Dosage: UNK
     Route: 048
     Dates: start: 20090123, end: 20090203
  19. SOLU-MEDROL [Concomitant]
     Dosage: UNK
     Route: 042
     Dates: start: 20090123, end: 20090202
  20. TAZOCILLINE [Concomitant]
     Dosage: UNK
     Route: 042
     Dates: start: 20090209, end: 20090216
  21. VANCOMYCIN HYDROCHLORIDE [Concomitant]
     Dosage: UNK
     Route: 042
     Dates: start: 20090206, end: 20090216
  22. CIFLOX [Concomitant]
     Dosage: UNK
     Route: 042
     Dates: start: 20090204, end: 20090209
  23. FORTUM [Concomitant]
     Dosage: UNK
     Route: 042
     Dates: start: 20090204, end: 20090209

REACTIONS (1)
  - DEATH [None]
